FAERS Safety Report 8865953 (Version 1)
Quarter: 2012Q4

REPORT INFORMATION
  Report Type: Report from Study
  Country: US (occurrence: US)
  Receive Date: 20121025
  Receipt Date: 20121025
  Transmission Date: 20130627
  Serious: No
  Sender: FDA-Public Use
  Company Number: US-ABBOTT-12P-163-0952633-00

PATIENT
  Age: 35 Year
  Sex: Female
  Weight: 99.88 kg

DRUGS (5)
  1. LUPRON DEPOT 3.75 MG [Suspect]
     Indication: ENDOMETRIOSIS
     Dates: start: 201206
  2. ELMIRON [Concomitant]
     Indication: CYSTITIS INTERSTITIAL
  3. HYDROXYZINE [Concomitant]
     Indication: CYSTITIS INTERSTITIAL
  4. LOSARTIN [Concomitant]
     Indication: HYPERTENSION
  5. NORETHINDRONE ACETATE [Concomitant]
     Indication: HORMONE REPLACEMENT THERAPY
     Dates: start: 201206

REACTIONS (2)
  - Vision blurred [Not Recovered/Not Resolved]
  - Diplopia [Not Recovered/Not Resolved]
